FAERS Safety Report 8053445-5 (Version None)
Quarter: 2012Q1

REPORT INFORMATION
  Report Type: 
  Country: None (occurrence: None)
  Receive Date: 20120118
  Receipt Date: 20120111
  Transmission Date: 20120608
  Serious: Yes (Hospitalization, Disabling)
  Sender: FDA-Public Use
  Company Number: JP-GLAXOSMITHKLINE-B0762475A

PATIENT
  Sex: Male

DRUGS (5)
  1. LOSARTAN POTASSIUM [Concomitant]
     Dosage: 50MG PER DAY
     Route: 048
  2. ETODOLAC [Concomitant]
     Dosage: 400MG PER DAY
     Route: 048
  3. ANTAGOSTIN [Concomitant]
     Route: 048
  4. HEPSERA [Suspect]
     Indication: HEPATITIS B
     Dosage: 10MG PER DAY
     Route: 048
     Dates: start: 20040901, end: 20111101
  5. LAMIVUDINE, STAVUDINE, AND NEVIRAPINE [Suspect]
     Indication: HEPATITIS B
     Dosage: 100MG PER DAY
     Route: 048
     Dates: start: 20011001, end: 20111101

REACTIONS (11)
  - FANCONI SYNDROME [None]
  - BLOOD ALKALINE PHOSPHATASE INCREASED [None]
  - RIB FRACTURE [None]
  - FIBULA FRACTURE [None]
  - ARTHRALGIA [None]
  - OSTEOMALACIA [None]
  - BLOOD CREATININE INCREASED [None]
  - MULTIPLE FRACTURES [None]
  - BLOOD URIC ACID DECREASED [None]
  - TIBIA FRACTURE [None]
  - BLOOD PHOSPHORUS DECREASED [None]
